FAERS Safety Report 8880181 (Version 3)
Quarter: 2014Q3

REPORT INFORMATION
  Report Type: Report from Study
  Country: FR (occurrence: FR)
  Receive Date: 20121101
  Receipt Date: 20140915
  Transmission Date: 20150326
  Serious: Yes (Other)
  Sender: FDA-Public Use
  Company Number: PHHO2012FR014333

PATIENT
  Age: 4 Year
  Sex: Male
  Weight: 20 kg

DRUGS (21)
  1. SABRIL [Concomitant]
     Active Substance: VIGABATRIN
     Indication: EPILEPSY
     Dosage: 2.5 G, QD (1G MORNING AND 1.5 G EVENING)
     Route: 048
     Dates: start: 20080418
  2. LAMICTAL [Concomitant]
     Active Substance: LAMOTRIGINE
     Indication: EPILEPSY
     Dosage: 100 MG, BID
     Route: 048
     Dates: start: 20100122
  3. AUGMENTIN [Concomitant]
     Active Substance: AMOXICILLIN\CLAVULANATE POTASSIUM
     Indication: GASTRITIS
     Dosage: UNK
     Dates: start: 20120720, end: 20120728
  4. VENTOLINE [Concomitant]
     Active Substance: ALBUTEROL
     Indication: BRONCHITIS
     Dosage: UNK
     Dates: start: 20120220
  5. FORLAX [Concomitant]
     Active Substance: POLYETHYLENE GLYCOL 4000
     Indication: CONSTIPATION
     Dosage: UNK
     Dates: start: 20090729
  6. KETOGAN [Concomitant]
     Active Substance: KETOBEMIDONE HYDROCHLORIDE
     Indication: EPILEPSY
     Dosage: UNK
     Dates: start: 20090728
  7. IALUSET [Concomitant]
     Indication: SKIN ULCER
     Dosage: UNK
     Dates: start: 20120828, end: 20120831
  8. NORMACOL [Concomitant]
     Active Substance: KARAYA GUM
     Indication: ABDOMINAL PAIN
     Dosage: UNK
     Dates: start: 20120606, end: 20120606
  9. VOGALENE [Concomitant]
     Active Substance: METOPIMAZINE
     Indication: GASTRITIS
     Dosage: UNK
     Dates: start: 20120719, end: 20120719
  10. AMOXICILLIN. [Concomitant]
     Active Substance: AMOXICILLIN
     Indication: BRONCHITIS
     Dosage: UNK
     Dates: start: 20120220, end: 20120227
  11. DEBRIDAT [Concomitant]
     Active Substance: TRIMEBUTINE MALEATE
     Indication: CONSTIPATION
     Dosage: UNK
     Dates: start: 201105
  12. MOPRAL [Concomitant]
     Active Substance: OMEPRAZOLE SODIUM
     Indication: GASTROOESOPHAGEAL REFLUX DISEASE
     Dosage: UNK
     Dates: start: 20090729
  13. IALUSET [Concomitant]
     Dosage: UNK
     Dates: start: 20120901, end: 20120911
  14. DOLIPRANE [Concomitant]
     Active Substance: ACETAMINOPHEN
     Dosage: UNK
     Dates: start: 20120730, end: 20120802
  15. RISPERDAL [Concomitant]
     Active Substance: RISPERIDONE
     Indication: ABNORMAL BEHAVIOUR
     Dosage: 1.25 ML, BID
     Route: 048
     Dates: start: 20100218
  16. DOLIPRANE [Concomitant]
     Active Substance: ACETAMINOPHEN
     Indication: GASTRITIS
     Dosage: UNK
     Dates: start: 20120719, end: 20120720
  17. GLYCEROL\PARAFFIN [Concomitant]
     Active Substance: GLYCERIN\PARAFFIN
     Indication: DRY SKIN
     Dosage: UNK
     Dates: start: 20120409
  18. AFINITOR [Suspect]
     Active Substance: EVEROLIMUS
     Indication: ASTROCYTOMA, LOW GRADE
     Dosage: 5 MG, QD
     Route: 048
     Dates: start: 20120215
  19. VOGALENE [Concomitant]
     Active Substance: METOPIMAZINE
     Dosage: UNK
     Dates: start: 20120722
  20. ORELOX [Concomitant]
     Active Substance: CEFPODOXIME
     Indication: RHINITIS
     Dosage: UNK
     Dates: start: 20120730, end: 20120805
  21. UVEDOSE [Concomitant]
     Active Substance: CHOLECALCIFEROL
     Dosage: UNK
     Dates: start: 200907

REACTIONS (3)
  - Partial seizures [Unknown]
  - Concomitant disease aggravated [Unknown]
  - Subdural haematoma [Unknown]

NARRATIVE: CASE EVENT DATE: 20120822
